FAERS Safety Report 4528188-2 (Version None)
Quarter: 2004Q4

REPORT INFORMATION
  Report Type: 
  Country: None (occurrence: None)
  Receive Date: 20041215
  Receipt Date: 20041210
  Transmission Date: 20050328
  Serious: Yes (Hospitalization)
  Sender: FDA-Public Use
  Company Number: CA-MERCK-0412CAN00078

PATIENT
  Sex: Female

DRUGS (2)
  1. VIOXX [Suspect]
     Indication: BACK PAIN
     Route: 065
  2. VIOXX [Suspect]
     Route: 048

REACTIONS (2)
  - ARRHYTHMIA [None]
  - HYPERVENTILATION [None]
